FAERS Safety Report 5702216-0 (Version None)
Quarter: 2008Q2

REPORT INFORMATION
  Report Type: 
  Country: None (occurrence: None)
  Receive Date: 20080411
  Receipt Date: 20071227
  Transmission Date: 20081010
  Serious: No
  Sender: FDA-Public Use
  Company Number: US-ABBOTT-08P-163-0431770-00

PATIENT
  Sex: Male
  Weight: 115 kg

DRUGS (2)
  1. DEPAKOTE [Suspect]
     Indication: BIPOLAR DISORDER
     Route: 048
     Dates: start: 19930101, end: 20071212
  2. DEPAKOTE [Suspect]
     Route: 048
     Dates: start: 20071212

REACTIONS (2)
  - TREMOR [None]
  - WEIGHT INCREASED [None]
